FAERS Safety Report 24822920 (Version 4)
Quarter: 2025Q1

REPORT INFORMATION
  Report Type: Spontaneous
  Country: US (occurrence: US)
  Receive Date: 20250109
  Receipt Date: 20250321
  Transmission Date: 20250409
  Serious: Yes (Life-Threatening, Other)
  Sender: ASTELLAS
  Company Number: US-ASTELLAS-2025-AER-000855

PATIENT
  Age: 56 Year
  Sex: Female

DRUGS (1)
  1. VEOZAH [Suspect]
     Active Substance: FEZOLINETANT
     Indication: Hot flush
     Route: 048
     Dates: start: 20241107, end: 20241112

REACTIONS (5)
  - Rash pustular [Recovered/Resolved]
  - Septic rash [Unknown]
  - Scar [Recovered/Resolved]
  - Scab [Unknown]
  - Off label use [Unknown]

NARRATIVE: CASE EVENT DATE: 20241101
